FAERS Safety Report 17373276 (Version 1)
Quarter: 2020Q1

REPORT INFORMATION
  Report Type: Spontaneous
  Country: US (occurrence: US)
  Receive Date: 20200121
  Receipt Date: 20200121
  Transmission Date: 20200409
  Serious: Yes (Hospitalization)
  Sender: FDA-Public Use
  Company Number: None

PATIENT
  Age: 10 Year
  Sex: Male

DRUGS (2)
  1. SILDENAFIL 10MG/ML SUSC (112ML) [Suspect]
     Active Substance: SILDENAFIL
     Indication: CARDIAC FAILURE
  2. SOD CHLARIOE GRA [Concomitant]

REACTIONS (2)
  - Laboratory test abnormal [None]
  - Cardiac failure [None]

NARRATIVE: CASE EVENT DATE: 201912
